FAERS Safety Report 4809269-2 (Version None)
Quarter: 2005Q4

REPORT INFORMATION
  Report Type: 
  Country: None (occurrence: None)
  Receive Date: 20051021
  Receipt Date: 20051013
  Transmission Date: 20060501
  Serious: Yes (Hospitalization)
  Sender: FDA-Public Use
  Company Number: GXKR2005PL01805

PATIENT
  Age: 4 Year
  Sex: Male
  Weight: 18.7 kg

DRUGS (1)
  1. AMOKSIKLAV (NGX) (AMOXICILLIN, CLAVULANATE)SUSPENSION, 457MG/5ML [Suspect]
     Indication: PHARYNGITIS
     Dosage: 10 ML (914 MG), ORAL
     Route: 048
     Dates: start: 20050922, end: 20050927

REACTIONS (3)
  - JOINT SWELLING [None]
  - PETECHIAE [None]
  - URTICARIA [None]
